FAERS Safety Report 14394365 (Version 2)
Quarter: 2018Q1

REPORT INFORMATION
  Report Type: Spontaneous
  Country: JP (occurrence: JP)
  Receive Date: 20180116
  Receipt Date: 20180228
  Transmission Date: 20180509
  Serious: Yes (Other)
  Sender: FDA-Public Use
  Company Number: JP-SA-2018SA010211

PATIENT
  Age: 49 Year
  Sex: Female

DRUGS (3)
  1. DOCETAXEL. [Suspect]
     Active Substance: DOCETAXEL
     Indication: BREAST CANCER
     Route: 065
  2. TRASTUZUMAB. [Suspect]
     Active Substance: TRASTUZUMAB
     Indication: BREAST CANCER
     Route: 065
  3. VELTUZUMAB [Concomitant]

REACTIONS (3)
  - Pleural effusion [Recovered/Resolved]
  - Hypoalbuminaemia [Recovered/Resolved]
  - Dyspnoea [Recovered/Resolved]
